FAERS Safety Report 6368732-6 (Version None)
Quarter: 2009Q3

REPORT INFORMATION
  Report Type: 
  Country: None (occurrence: None)
  Receive Date: 20090916
  Receipt Date: 20090904
  Transmission Date: 20100115
  Serious: Yes (Hospitalization)
  Sender: FDA-Public Use
  Company Number: 2009-189973-NL

PATIENT
  Age: 33 Year
  Sex: Female
  Weight: 77.1 kg

DRUGS (3)
  1. NUVARING [Suspect]
     Indication: CONTRACEPTION
     Dosage: 1 DF
     Dates: start: 20061006, end: 20070408
  2. ADVIL [Concomitant]
  3. TYLENOL (CAPLET) [Concomitant]

REACTIONS (10)
  - ANXIETY [None]
  - DEEP VEIN THROMBOSIS [None]
  - DYSPNOEA EXERTIONAL [None]
  - INTERNATIONAL NORMALISED RATIO DECREASED [None]
  - NON-CARDIAC CHEST PAIN [None]
  - PHLEBITIS [None]
  - PLANTAR FASCIITIS [None]
  - PULMONARY EMBOLISM [None]
  - VARICOSE VEIN [None]
  - VENTRICULAR HYPOKINESIA [None]
